FAERS Safety Report 8424767 (Version 6)
Quarter: 2012Q4

REPORT INFORMATION
  Report Type: Report from Study
  Country: DE (occurrence: DE)
  Receive Date: 20120224
  Receipt Date: 20120925
  Transmission Date: 20130627
  Serious: Yes (Life-Threatening, Hospitalization)
  Sender: FDA-Public Use
  Company Number: DE-UCBSA-046565

PATIENT
  Age: 65 Year
  Sex: Female
  Weight: 64 kg

DRUGS (25)
  1. CIMZIA [Suspect]
     Indication: RHEUMATOID ARTHRITIS
     Dosage: NUMBER OF DOSES RECIEVED 4
     Route: 058
     Dates: start: 20110110, end: 20110210
  2. KINERET [Suspect]
     Indication: RHEUMATOID ARTHRITIS
     Route: 058
     Dates: start: 20080827, end: 20110112
  3. KINERET [Suspect]
     Indication: RHEUMATOID ARTHRITIS
     Dosage: 100 MG
     Dates: start: 201102
  4. KINERET [Suspect]
     Indication: RHEUMATOID ARTHRITIS
     Route: 058
     Dates: start: 20110314, end: 2011
  5. KINERET [Suspect]
     Indication: RHEUMATOID ARTHRITIS
     Dates: start: 20110329, end: 20110509
  6. URBASON [Concomitant]
     Indication: RHEUMATOID ARTHRITIS
     Route: 048
     Dates: start: 1980
  7. FRAXIPARIN [Concomitant]
     Indication: ATRIAL FIBRILLATION
     Route: 058
     Dates: start: 200602
  8. CALCIDOC [Concomitant]
     Indication: OSTEOPOROSIS
     Dosage: 600/4.0 MG ONCE PER DAY
     Route: 048
     Dates: start: 200602
  9. L-THYROX [Concomitant]
     Indication: GOITRE
     Route: 048
     Dates: start: 2000
  10. L-THYROX [Concomitant]
     Indication: GOITRE
     Dosage: 50  MICROGRAM
     Dates: start: 200602
  11. OMEPRAZOL [Concomitant]
     Indication: PROPHYLAXIS AGAINST GASTROINTESTINAL ULCER
     Route: 048
     Dates: start: 200505
  12. VOLTAREN SUPP [Concomitant]
     Indication: RHEUMATOID ARTHRITIS
     Route: 054
     Dates: start: 1980
  13. AMPHO-MORONAL [Concomitant]
     Indication: STOMATITIS
     Dates: start: 20110225
  14. AMPHO-MORONAL [Concomitant]
     Indication: STOMATITIS
     Dates: start: 20110501, end: 20110509
  15. TAVANIC [Concomitant]
     Indication: ANTIBIOTIC PROPHYLAXIS
     Dates: start: 20110317, end: 2011
  16. TAVANIC [Concomitant]
     Indication: ANTIBIOTIC PROPHYLAXIS
     Dosage: 500 MG
     Dates: start: 20110503, end: 20110509
  17. PROLIA [Concomitant]
     Indication: OSTEOPOROSIS
     Route: 058
     Dates: start: 20100604
  18. NOVAMINSULFON [Concomitant]
     Indication: RHEUMATOID ARTHRITIS
     Route: 048
     Dates: start: 20110217
  19. GENTAMYCIN [Concomitant]
     Indication: FURUNCLE
     Route: 061
     Dates: start: 201105, end: 201105
  20. TAMBOCOR [Concomitant]
     Dates: start: 200602
  21. CONCOR [Concomitant]
     Dosage: 10 MG
     Dates: start: 200602
  22. MTX [Concomitant]
  23. SULFASALAZINE [Concomitant]
  24. HYDROXYCHLOROQUINE [Concomitant]
  25. BISOPROLOL [Concomitant]
     Indication: HYPERTENSION
     Dates: start: 200602

REACTIONS (4)
  - Cardiac arrest [Recovered/Resolved]
  - Cardiac failure [Unknown]
  - Leukopenia [Recovered/Resolved]
  - Myocardial infarction [Recovered/Resolved]
